FAERS Safety Report 18358734 (Version 4)
Quarter: 2021Q1

REPORT INFORMATION
  Report Type: Report from Study
  Country: None (occurrence: CA)
  Receive Date: 20201008
  Receipt Date: 20210316
  Transmission Date: 20210419
  Serious: No
  Sender: FDA-Public Use
  Company Number: CA-ABBVIE-20K-028-3592841-00

PATIENT
  Age: 71 Year
  Sex: Female

DRUGS (2)
  1. SKYRIZI [Suspect]
     Active Substance: RISANKIZUMAB-RZAA
     Route: 058
     Dates: start: 20200317
  2. SKYRIZI [Suspect]
     Active Substance: RISANKIZUMAB-RZAA
     Indication: PSORIASIS
     Route: 058
     Dates: start: 20200317, end: 20200929

REACTIONS (12)
  - Malaise [Unknown]
  - Fall [Recovered/Resolved]
  - Alopecia [Not Recovered/Not Resolved]
  - Flatulence [Unknown]
  - Head injury [Recovered/Resolved]
  - Weight increased [Unknown]
  - Eczema [Not Recovered/Not Resolved]
  - Insomnia [Unknown]
  - Pruritus genital [Unknown]
  - Psoriasis [Not Recovered/Not Resolved]
  - Wrist fracture [Recovered/Resolved]
  - Drug ineffective [Not Recovered/Not Resolved]

NARRATIVE: CASE EVENT DATE: 2020
